FAERS Safety Report 11213257 (Version 1)
Quarter: 2015Q2

REPORT INFORMATION
  Report Type: Spontaneous
  Country: ES (occurrence: ES)
  Receive Date: 20150623
  Receipt Date: 20150623
  Transmission Date: 20150821
  Serious: Yes (Life-Threatening, Other)
  Sender: FDA-Public Use
  Company Number: ES-GLAXOSMITHKLINE-ES2015085907

PATIENT
  Age: 46 Year
  Sex: Female

DRUGS (1)
  1. NARAMIG [Suspect]
     Active Substance: NARATRIPTAN HYDROCHLORIDE
     Indication: MIGRAINE
     Dosage: 1
     Route: 048
     Dates: start: 20111031, end: 20150605

REACTIONS (1)
  - Prinzmetal angina [Recovering/Resolving]

NARRATIVE: CASE EVENT DATE: 20120412
